FAERS Safety Report 6404623-X (Version None)
Quarter: 2009Q4

REPORT INFORMATION
  Report Type: 
  Country: None (occurrence: None)
  Receive Date: 20091016
  Receipt Date: 20091012
  Transmission Date: 20100525
  Serious: Yes (Other)
  Sender: FDA-Public Use
  Company Number: FR-ROCHE-654707

PATIENT
  Age: 38 Year
  Sex: Male

DRUGS (1)
  1. RIVOTRIL [Suspect]
     Indication: DRUG USE FOR UNKNOWN INDICATION
     Route: 065
     Dates: start: 20090501

REACTIONS (4)
  - CONFUSIONAL STATE [None]
  - RASH [None]
  - VISUAL IMPAIRMENT [None]
  - WAXY FLEXIBILITY [None]
